FAERS Safety Report 6571239-4 (Version None)
Quarter: 2010Q1

REPORT INFORMATION
  Report Type: 
  Country: None (occurrence: None)
  Receive Date: 20100129
  Receipt Date: 20100118
  Transmission Date: 20100710
  Serious: Yes (Other)
  Sender: FDA-Public Use
  Company Number: PAR_03027_2009

PATIENT
  Age: 44 Year
  Sex: Male

DRUGS (2)
  1. IBUPROFENO     (IBUPROFENO - IBUPROFEN) [Suspect]
     Indication: SINUSITIS
     Dosage: (600 MG TID ORAL)
     Route: 048
     Dates: start: 20090305, end: 20090306
  2. MOXIFLOXACIN HYDROCHLORIDE [Suspect]
     Indication: SINUSITIS
     Dosage: (400 MG ORAL)
     Route: 048
     Dates: start: 20090305, end: 20090309

REACTIONS (6)
  - BILIARY TRACT DISORDER [None]
  - CHOLURIA [None]
  - DRUG INTERACTION [None]
  - DYSGEUSIA [None]
  - HEPATOTOXICITY [None]
  - THERAPEUTIC AGENT TOXICITY [None]
